FAERS Safety Report 17994615 (Version 1)
Quarter: 2020Q3

REPORT INFORMATION
  Report Type: Spontaneous
  Country: US (occurrence: US)
  Receive Date: 20200708
  Receipt Date: 20200708
  Transmission Date: 20201103
  Serious: Yes (Hospitalization)
  Sender: FDA-Public Use
  Company Number: None

PATIENT
  Age: 58 Year
  Sex: Female

DRUGS (14)
  1. ACARBOSE. [Concomitant]
     Active Substance: ACARBOSE
  2. DIAZEPAM. [Concomitant]
     Active Substance: DIAZEPAM
  3. AZITHROMYCIN ANHYDROUS. [Concomitant]
     Active Substance: AZITHROMYCIN ANHYDROUS
  4. BELSOMRA [Concomitant]
     Active Substance: SUVOREXANT
  5. BUPROPION. [Concomitant]
     Active Substance: BUPROPION
  6. PRAZOSIN. [Concomitant]
     Active Substance: PRAZOSIN
  7. OXYCODONE [Concomitant]
     Active Substance: OXYCODONE
  8. SYNTHROID [Concomitant]
     Active Substance: LEVOTHYROXINE SODIUM
  9. TIZANIDINE. [Concomitant]
     Active Substance: TIZANIDINE
  10. FLUTICASONE. [Concomitant]
     Active Substance: FLUTICASONE
  11. BENZONATATE. [Concomitant]
     Active Substance: BENZONATATE
  12. GLATIRAMER [Suspect]
     Active Substance: GLATIRAMER
     Indication: MULTIPLE SCLEROSIS
     Dosage: ?          OTHER FREQUENCY:3 TIMES PER WEEK;?
     Route: 058
     Dates: start: 20190827
  13. HYDROXYCHLOR [Concomitant]
     Active Substance: HYDROXYCHLOROQUINE
  14. DULOXETINE. [Concomitant]
     Active Substance: DULOXETINE

REACTIONS (2)
  - Upper limb fracture [None]
  - Fall [None]
